FAERS Safety Report 25542777 (Version 1)
Quarter: 2025Q3

REPORT INFORMATION
  Report Type: Spontaneous
  Country: IN (occurrence: IN)
  Receive Date: 20250711
  Receipt Date: 20250711
  Transmission Date: 20251020
  Serious: Yes (Hospitalization, Other)
  Sender: Unknown Manufacturer
  Company Number: IN-862174955-ML2025-03359

PATIENT
  Age: 56 Year
  Sex: Male

DRUGS (2)
  1. FLUOXETINE [Suspect]
     Active Substance: FLUOXETINE HYDROCHLORIDE
     Indication: Depression
  2. METOPROLOL [Suspect]
     Active Substance: METOPROLOL
     Indication: Hypertension

REACTIONS (3)
  - Bundle branch block right [Recovering/Resolving]
  - Atrioventricular block complete [Recovered/Resolved]
  - Drug interaction [Unknown]
